FAERS Safety Report 4461735-8 (Version None)
Quarter: 2004Q3

REPORT INFORMATION
  Report Type: 
  Country: None (occurrence: None)
  Receive Date: 20040929
  Receipt Date: 20040922
  Transmission Date: 20050211
  Serious: Yes (Hospitalization)
  Sender: FDA-Public Use
  Company Number: PHEH2004US10349

PATIENT
  Sex: 0

DRUGS (1)
  1. LOTREL [Suspect]
     Dosage: UNK/UNK

REACTIONS (1)
  - HYPERSENSITIVITY [None]
